FAERS Safety Report 8845117 (Version 6)
Quarter: 2013Q1

REPORT INFORMATION
  Report Type: Spontaneous
  Country: US (occurrence: US)
  Receive Date: 20121017
  Receipt Date: 20130204
  Transmission Date: 20140127
  Serious: Yes (Other)
  Sender: FDA-Public Use
  Company Number: US-009507513-1210USA006767

PATIENT
  Sex: Female

DRUGS (3)
  1. PEGINTRON [Suspect]
     Indication: HEPATITIS C
     Dosage: UNK
     Route: 058
     Dates: start: 20120918
  2. RIBAVIRIN [Suspect]
     Indication: HEPATITIS C
     Dosage: UNK
     Route: 048
     Dates: start: 20120918
  3. VICTRELIS [Suspect]
     Indication: HEPATITIS C
     Dosage: UNK
     Route: 048
     Dates: start: 20121016

REACTIONS (35)
  - Dehydration [Unknown]
  - Dehydration [Unknown]
  - Sluggishness [Unknown]
  - Vomiting [Unknown]
  - Asthenia [Unknown]
  - Decreased appetite [Unknown]
  - Weight decreased [Unknown]
  - Nausea [Unknown]
  - Dry skin [Unknown]
  - Pruritus [Unknown]
  - Dysgeusia [Unknown]
  - Thirst [Unknown]
  - Arthralgia [Unknown]
  - Abasia [Unknown]
  - Influenza [Unknown]
  - Agitation [Unknown]
  - Asthenia [Unknown]
  - Anxiety [Unknown]
  - Somnolence [Unknown]
  - Diarrhoea [Unknown]
  - Application site discomfort [Unknown]
  - Pain in extremity [Unknown]
  - Decreased appetite [Unknown]
  - Nausea [Unknown]
  - Weight decreased [Unknown]
  - Malaise [Unknown]
  - Pallor [Unknown]
  - Nausea [Unknown]
  - Weight decreased [Unknown]
  - Decreased appetite [Unknown]
  - Nausea [Unknown]
  - Fatigue [Unknown]
  - Alopecia [Unknown]
  - Skin disorder [Unknown]
  - Pain [Unknown]
